FAERS Safety Report 14334737 (Version 2)
Quarter: 2018Q1

REPORT INFORMATION
  Report Type: Report from Study
  Country: AT (occurrence: AT)
  Receive Date: 20171228
  Receipt Date: 20180301
  Transmission Date: 20180509
  Serious: Yes (Hospitalization)
  Sender: FDA-Public Use
  Company Number: AT-CONCORDIA PHARMACEUTICALS INC.-E2B_00009122

PATIENT
  Age: 71 Year
  Sex: Female

DRUGS (4)
  1. PREDNISOLONE. [Suspect]
     Active Substance: PREDNISOLONE
     Indication: RHEUMATOID ARTHRITIS
     Dosage: 7,5 MG
     Route: 048
     Dates: end: 201607
  2. SULFASALAZINE DELAYED-RELEASE [Suspect]
     Active Substance: SULFASALAZINE
     Indication: PRODUCT USED FOR UNKNOWN INDICATION
     Route: 065
  3. MABTHERA [Suspect]
     Active Substance: RITUXIMAB
     Indication: RHEUMATOID ARTHRITIS
     Route: 042
     Dates: end: 201603
  4. METHOTREXATE. [Suspect]
     Active Substance: METHOTREXATE
     Indication: RHEUMATOID ARTHRITIS
     Route: 048
     Dates: end: 201607

REACTIONS (2)
  - Joint instability [Recovered/Resolved]
  - Organising pneumonia [Recovered/Resolved]

NARRATIVE: CASE EVENT DATE: 20160711
